FAERS Safety Report 5170387-3 (Version None)
Quarter: 2006Q4

REPORT INFORMATION
  Report Type: 
  Country: None (occurrence: None)
  Receive Date: 20061212
  Receipt Date: 20061204
  Transmission Date: 20070319
  Serious: Yes (Hospitalization)
  Sender: FDA-Public Use
  Company Number: BEWYE728604DEC06

PATIENT
  Age: 58 Year
  Sex: Female

DRUGS (7)
  1. ENBREL [Suspect]
     Indication: RHEUMATOID ARTHRITIS
     Route: 030
     Dates: start: 20030424, end: 20061031
  2. TRANXENE [Concomitant]
  3. REMERON [Concomitant]
  4. DEPAKENE [Concomitant]
  5. ESCITALOPRAM OXALATE [Concomitant]
  6. ACTONEL [Concomitant]
  7. AMISULPRIDE [Concomitant]

REACTIONS (3)
  - COMA [None]
  - MENINGITIS MENINGOCOCCAL [None]
  - STOMATITIS NECROTISING [None]
